FAERS Safety Report 6443052-X (Version None)
Quarter: 2009Q4

REPORT INFORMATION
  Report Type: 
  Country: None (occurrence: None)
  Receive Date: 20091117
  Receipt Date: 20091105
  Transmission Date: 20100525
  Serious: Yes (Other)
  Sender: FDA-Public Use
  Company Number: FR-PFIZER INC-2009294590

PATIENT
  Age: 39 Year
  Sex: Male

DRUGS (4)
  1. SILDENAFIL CITRATE [Suspect]
     Indication: PULMONARY HYPERTENSION
     Dosage: 20 MG, 2X/DAY
  2. CO-TRIMOXAZOLE [Concomitant]
     Indication: PROPHYLAXIS
  3. FLUCYTOSINE [Concomitant]
     Indication: PROPHYLAXIS
  4. PREDNISONE [Concomitant]
     Indication: DYSPNOEA

REACTIONS (4)
  - DYSPNOEA [None]
  - HYPOXIA [None]
  - PLEURAL EFFUSION [None]
  - PULMONARY OEDEMA [None]
